FAERS Safety Report 23061127 (Version 1)
Quarter: 2023Q4

REPORT INFORMATION
  Report Type: Report from Study
  Country: US (occurrence: US)
  Receive Date: 20231013
  Receipt Date: 20231013
  Transmission Date: 20240109
  Serious: Yes (Other)
  Sender: FDA-Public Use
  Company Number: US-ABBVIE-5445331

PATIENT
  Sex: Female

DRUGS (1)
  1. LINZESS [Suspect]
     Active Substance: LINACLOTIDE
     Indication: Constipation
     Dosage: FORM STRENGTH 290 MICROGRAM, START DATE TEXT: COUPLE YEARS AGO
     Route: 048
     Dates: start: 2021

REACTIONS (5)
  - Drug dependence [Unknown]
  - Abdominal distension [Unknown]
  - Unevaluable event [Unknown]
  - Malaise [Unknown]
  - Pain [Unknown]
